FAERS Safety Report 22188375 (Version 15)
Quarter: 2024Q2

REPORT INFORMATION
  Report Type: Report from Study
  Country: MX (occurrence: MX)
  Receive Date: 20230408
  Receipt Date: 20240403
  Transmission Date: 20240716
  Serious: Yes (Hospitalization, Other)
  Sender: FDA-Public Use
  Company Number: MX-002147023-NVSC2023MX019286

PATIENT
  Age: 54 Year
  Sex: Female
  Weight: 58 kg

DRUGS (12)
  1. OFATUMUMAB [Suspect]
     Active Substance: OFATUMUMAB
     Indication: Relapsing-remitting multiple sclerosis
     Dosage: 20 MG, QMO
     Route: 058
     Dates: start: 20230121
  2. OFATUMUMAB [Suspect]
     Active Substance: OFATUMUMAB
     Indication: Multiple sclerosis
     Dosage: UNK (SECOND APPLICATION)
     Route: 058
  3. OFATUMUMAB [Suspect]
     Active Substance: OFATUMUMAB
     Dosage: UNK (FIFTH APPLICATION)
     Route: 058
     Dates: start: 20230405
  4. OFATUMUMAB [Suspect]
     Active Substance: OFATUMUMAB
     Dosage: 20 MG, QMO
     Route: 058
     Dates: start: 20230911
  5. OFATUMUMAB [Suspect]
     Active Substance: OFATUMUMAB
     Dosage: UNK (IN AFTERNOON)
     Route: 065
     Dates: start: 20231012
  6. OFATUMUMAB [Suspect]
     Active Substance: OFATUMUMAB
     Dosage: 0.25, QMO
     Route: 058
  7. OFATUMUMAB [Suspect]
     Active Substance: OFATUMUMAB
     Dosage: UNK
     Route: 065
     Dates: start: 20231213
  8. OFATUMUMAB [Suspect]
     Active Substance: OFATUMUMAB
     Dosage: 20 MG, QMO
     Route: 058
  9. OFATUMUMAB [Suspect]
     Active Substance: OFATUMUMAB
     Dosage: 20 MG
     Route: 058
     Dates: start: 20231215
  10. KARET [Concomitant]
     Indication: Hyperthyroidism
     Dosage: 100 UG (1), QD (ON AN EMPTY STOMACH), ONE DAILY IN THE MORNING AND WHILE FASTING
     Route: 065
     Dates: start: 1997
  11. OMEGA 3 [Concomitant]
     Active Substance: CAPSAICIN
     Indication: Product used for unknown indication
     Dosage: UNK
     Route: 065
  12. VITAMIN D [Concomitant]
     Active Substance: VITAMIN D NOS
     Indication: Product used for unknown indication
     Dosage: 4000 IU, Q24H
     Route: 065

REACTIONS (29)
  - Somnolence [Not Recovered/Not Resolved]
  - Respiratory disorder [Unknown]
  - Immune system disorder [Unknown]
  - Gait disturbance [Not Recovered/Not Resolved]
  - Influenza [Recovering/Resolving]
  - Cough [Unknown]
  - Multiple sclerosis relapse [Recovered/Resolved]
  - Mobility decreased [Not Recovered/Not Resolved]
  - Nasopharyngitis [Not Recovered/Not Resolved]
  - Pyrexia [Not Recovered/Not Resolved]
  - Cholelithiasis [Not Recovered/Not Resolved]
  - Paralysis [Not Recovered/Not Resolved]
  - Liver disorder [Unknown]
  - Fatigue [Recovering/Resolving]
  - Pain in extremity [Recovering/Resolving]
  - Limb discomfort [Not Recovered/Not Resolved]
  - Abdominal pain upper [Not Recovered/Not Resolved]
  - Aspartate aminotransferase increased [Recovering/Resolving]
  - Alanine aminotransferase increased [Recovering/Resolving]
  - Blood alkaline phosphatase increased [Not Recovered/Not Resolved]
  - Gamma-glutamyltransferase increased [Recovering/Resolving]
  - Amylase decreased [Recovering/Resolving]
  - Blood creatine phosphokinase decreased [Unknown]
  - Hypoaesthesia [Not Recovered/Not Resolved]
  - Feeling abnormal [Unknown]
  - Anal incontinence [Not Recovered/Not Resolved]
  - Back pain [Not Recovered/Not Resolved]
  - Inappropriate schedule of product administration [Not Recovered/Not Resolved]
  - Off label use [Unknown]

NARRATIVE: CASE EVENT DATE: 20230121
